FAERS Safety Report 15149724 (Version 2)
Quarter: 2019Q2

REPORT INFORMATION
  Report Type: Spontaneous
  Country: US (occurrence: US)
  Receive Date: 20180716
  Receipt Date: 20190401
  Transmission Date: 20190711
  Serious: No
  Sender: FDA-Public Use
  Company Number: US-VANDA PHARMACEUTICALS, INC-2018TASUS002239

PATIENT
  Age: 53 Year
  Sex: Female
  Weight: 98.87 kg

DRUGS (1)
  1. HETLIOZ [Suspect]
     Active Substance: TASIMELTEON
     Indication: SLEEP DISORDER
     Dosage: 20 MG, AT NIGHT
     Route: 048
     Dates: start: 20180320

REACTIONS (7)
  - Peripheral swelling [Unknown]
  - Pain [Unknown]
  - Swelling face [Unknown]
  - Muscle spasms [Unknown]
  - Dyspnoea exertional [Unknown]
  - Heart rate increased [Unknown]
  - Weight increased [Unknown]
